FAERS Safety Report 6385275-4 (Version None)
Quarter: 2009Q4

REPORT INFORMATION
  Report Type: 
  Country: None (occurrence: None)
  Receive Date: 20091002
  Receipt Date: 20080819
  Transmission Date: 20100525
  Serious: No
  Sender: FDA-Public Use
  Company Number: US-ASTRAZENECA-2008UW16951

PATIENT
  Age: 84 Year
  Sex: Female
  Weight: 77.1 kg

DRUGS (3)
  1. ARIMIDEX [Suspect]
     Indication: BREAST CANCER
     Route: 048
     Dates: start: 20060401
  2. TOPROL-XL [Concomitant]
  3. ZESTORETIC [Concomitant]

REACTIONS (4)
  - ARTHRITIS [None]
  - HYPOAESTHESIA [None]
  - MYALGIA [None]
  - SKIN DISCOLOURATION [None]
